FAERS Safety Report 4421813-6 (Version None)
Quarter: 2004Q3

REPORT INFORMATION
  Report Type: 
  Country: None (occurrence: None)
  Receive Date: 20040806
  Receipt Date: 20040726
  Transmission Date: 20050211
  Serious: Yes (Hospitalization)
  Sender: FDA-Public Use
  Company Number: US-JNJFOC-20040707120

PATIENT
  Age: 72 Year
  Sex: Male

DRUGS (9)
  1. INFLIXIMAB, (INFLIXIMAB, RECOMBINANT) [Suspect]
     Indication: RHEUMATOID ARTHRITIS
     Dosage: , 1 IN 8 WEEK, INTRAVENOUS
     Route: 042
     Dates: start: 20011126
  2. ZANTAC [Concomitant]
  3. NEXIUM [Concomitant]
  4. ARAVA [Concomitant]
  5. FOLIC ACID [Concomitant]
  6. METHOTREXATE [Concomitant]
  7. PREDNISONE [Concomitant]
  8. ZIAC (BISELECT) [Concomitant]
  9. MULTIVITAMIN (MULTIVITAMINS) [Concomitant]

REACTIONS (1)
  - CHOLECYSTECTOMY [None]
